FAERS Safety Report 6306818-2 (Version None)
Quarter: 2009Q3

REPORT INFORMATION
  Report Type: 
  Country: None (occurrence: None)
  Receive Date: 20090811
  Receipt Date: 20090811
  Transmission Date: 20100115
  Serious: Yes (Hospitalization)
  Sender: FDA-Public Use
  Company Number: None

PATIENT
  Age: 54 Year
  Sex: Female

DRUGS (2)
  1. ATIVAN [Suspect]
     Indication: ANXIETY
     Dosage: 2 MG, 1 TABLET FOUR TIMES DAILY
  2. VITAMINS [Concomitant]

REACTIONS (8)
  - CHEST DISCOMFORT [None]
  - ENERGY INCREASED [None]
  - FEELING DRUNK [None]
  - FEELING OF RELAXATION [None]
  - MOVEMENT DISORDER [None]
  - NERVOUSNESS [None]
  - SLEEP DISORDER [None]
  - TREMOR [None]
